FAERS Safety Report 22053651 (Version 1)
Quarter: 2023Q1

REPORT INFORMATION
  Report Type: Other
  Country: US (occurrence: None)
  Receive Date: 20230302
  Receipt Date: 20230302
  Transmission Date: 20230418
  Serious: Yes (Other)
  Sender: FDA-Public Use
  Company Number: US-ROCHE-3294109

PATIENT
  Age: 73 Year
  Sex: Female

DRUGS (1)
  1. XELODA [Suspect]
     Active Substance: CAPECITABINE
     Indication: Neoplasm malignant
     Dosage: TAKE 2 TABLET(S) BY MOUTH EVERY 12 HOURS 2 WEEK(S) ON, 1 WEEK(S) OFF . MUST BE WITHIN 30 MINUTES OF
     Route: 048

REACTIONS (2)
  - Malignant neoplasm progression [Unknown]
  - Off label use [Unknown]
